FAERS Safety Report 4525869-1 (Version None)
Quarter: 2004Q4

REPORT INFORMATION
  Report Type: 
  Country: None (occurrence: None)
  Receive Date: 20041213
  Receipt Date: 20041004
  Transmission Date: 20050328
  Serious: Yes (Other)
  Sender: FDA-Public Use
  Company Number: DE-MERCK-0410DEU00052

PATIENT
  Age: 68 Year
  Sex: Female
  Weight: 111 kg

DRUGS (16)
  1. VIOXX [Suspect]
     Indication: LOCALISED OSTEOARTHRITIS
     Route: 048
     Dates: start: 20020601
  2. VIOXX [Suspect]
     Indication: CAUDA EQUINA SYNDROME
     Route: 048
     Dates: start: 20020601
  3. CANDESARTAN CILEXETIL [Concomitant]
     Route: 065
  4. BENZBROMARONE [Concomitant]
     Route: 065
  5. MOLSIDOMINE [Concomitant]
     Route: 065
  6. BUDESONIDE [Concomitant]
     Route: 065
  7. ACETYLDIGOXIN [Concomitant]
     Route: 065
  8. TERBUTALINE SULFATE [Concomitant]
     Route: 065
  9. LERCANIDIPINE [Concomitant]
     Route: 065
  10. SALMETEROL XINAFOATE [Concomitant]
     Route: 065
  11. XIPAMIDE [Concomitant]
     Route: 065
  12. IPRATROPIUM BROMIDE [Concomitant]
     Route: 065
  13. ATORVASTATIN CALCIUM [Concomitant]
     Route: 065
  14. CLOPIDOGREL BISULFATE [Concomitant]
     Route: 065
  15. INSULIN HUMAN [Concomitant]
     Route: 065
  16. METFORMIN HYDROCHLORIDE [Concomitant]
     Route: 065

REACTIONS (2)
  - CEREBROVASCULAR ACCIDENT [None]
  - MYOCARDIAL INFARCTION [None]
